FAERS Safety Report 9292724 (Version 1)
Quarter: 2013Q2

REPORT INFORMATION
  Report Type: Spontaneous
  Country: US (occurrence: None)
  Receive Date: 20130515
  Receipt Date: 20130515
  Transmission Date: 20140414
  Serious: Yes (Other)
  Sender: FDA-Public Use
  Company Number: None

PATIENT
  Age: 65 Year
  Sex: Female
  Weight: 68.04 kg

DRUGS (1)
  1. CIPROFLOXACIN [Suspect]
     Indication: SURGERY
     Dosage: 1-2 X DAY
     Route: 048
     Dates: start: 20121210, end: 20121217

REACTIONS (5)
  - Dermatitis contact [None]
  - Joint stiffness [None]
  - Musculoskeletal stiffness [None]
  - Musculoskeletal stiffness [None]
  - Tendon disorder [None]
